FAERS Safety Report 4648205-9 (Version None)
Quarter: 2005Q2

REPORT INFORMATION
  Report Type: 
  Country: None (occurrence: None)
  Receive Date: 20050331
  Receipt Date: 20050110
  Transmission Date: 20051028
  Serious: No
  Sender: FDA-Public Use
  Company Number: 05P-163-0285857-00

PATIENT
  Age: 69 Year
  Sex: Female
  Weight: 90.7194 kg

DRUGS (10)
  1. HUMIRA [Suspect]
     Indication: RHEUMATOID ARTHRITIS
     Dosage: 40 MG, 1 IN 2 WK, SUBCUTANEOUS
     Route: 058
     Dates: start: 20040901
  2. HYDROCODONE BITARTRATE [Concomitant]
  3. RANITIDINE HYDROCHLORIDE [Concomitant]
  4. METOPROLOL SUCCINATE [Concomitant]
  5. GABAPENTIN [Concomitant]
  6. ALPRAZOLAM [Concomitant]
  7. DIOVAN [Concomitant]
  8. FISH OIL [Concomitant]
  9. ZYTORIN [Concomitant]
  10. HYDROCHLOROTHIAZIDE [Concomitant]

REACTIONS (1)
  - FATIGUE [None]
